FAERS Safety Report 22399613 (Version 1)
Quarter: 2023Q2

REPORT INFORMATION
  Report Type: Report from Study
  Country: US (occurrence: US)
  Receive Date: 20230602
  Receipt Date: 20230602
  Transmission Date: 20230722
  Serious: Yes (Hospitalization, Other)
  Sender: FDA-Public Use
  Company Number: US-ABBVIE-5185757

PATIENT
  Sex: Female

DRUGS (1)
  1. CREON [Suspect]
     Active Substance: PANCRELIPASE AMYLASE\PANCRELIPASE LIPASE\PANCRELIPASE PROTEASE
     Indication: Product used for unknown indication
     Dosage: STRENGTH: 24000 UNIT, 6 CAPS EACH MEALS; 2-3 CAPS EACH SNACKS
     Route: 048
     Dates: end: 20230529

REACTIONS (3)
  - Pneumonia [Recovered/Resolved]
  - Pancreatectomy [Unknown]
  - Type 1 diabetes mellitus [Unknown]
